FAERS Safety Report 8655317 (Version 2)
Quarter: 2013Q2

REPORT INFORMATION
  Report Type: Spontaneous
  Country: IT (occurrence: IT)
  Receive Date: 20120709
  Receipt Date: 20130521
  Transmission Date: 20140414
  Serious: Yes (Hospitalization)
  Sender: FDA-Public Use
  Company Number: IT-NOVEN-12IT004909

PATIENT
  Age: 22 Year
  Sex: Female

DRUGS (3)
  1. PAROXETINE [Suspect]
     Indication: ABNORMAL BEHAVIOUR
     Dosage: 20 MG, QD
     Route: 048
     Dates: start: 20111202, end: 20120107
  2. LAMICTAL [Suspect]
     Indication: ABNORMAL BEHAVIOUR
     Dosage: 100 MG, QD
     Route: 048
     Dates: start: 20111202, end: 20120107
  3. UNKNOWN [Concomitant]

REACTIONS (4)
  - Drug reaction with eosinophilia and systemic symptoms [Recovered/Resolved]
  - Erythema [Recovered/Resolved]
  - Leukocytosis [Recovered/Resolved]
  - Lymphadenopathy [Recovered/Resolved]
